FAERS Safety Report 5697450-2 (Version None)
Quarter: 2008Q2

REPORT INFORMATION
  Report Type: 
  Country: None (occurrence: None)
  Receive Date: 20080407
  Receipt Date: 20080328
  Transmission Date: 20081010
  Serious: Yes (Other)
  Sender: FDA-Public Use
  Company Number: PHBS2008JP03761

PATIENT
  Age: 60 Year
  Sex: Female

DRUGS (3)
  1. SALAGEN [Suspect]
     Indication: DRY MOUTH
     Dosage: 5 MG, TID
     Route: 048
     Dates: start: 20071129, end: 20080217
  2. SALAGEN [Suspect]
     Route: 048
     Dates: start: 20080218, end: 20080220
  3. PRIMPERAN INJ [Concomitant]
     Dosage: 5 MG, TID
     Route: 048
     Dates: start: 20071129, end: 20080129

REACTIONS (1)
  - NAUSEA [None]
